FAERS Safety Report 7097061-0 (Version None)
Quarter: 2010Q4

REPORT INFORMATION
  Report Type: 
  Country: None (occurrence: None)
  Receive Date: 20101111
  Receipt Date: 20101104
  Transmission Date: 20110411
  Serious: Yes (Hospitalization)
  Sender: FDA-Public Use
  Company Number: US-BAYER-201039751NA

PATIENT
  Age: 3 Year
  Sex: Male

DRUGS (4)
  1. CIPRO [Suspect]
     Indication: BRONCHITIS
  2. TOBI [Concomitant]
     Indication: BRONCHITIS
  3. CAYSTON [Concomitant]
     Indication: BRONCHITIS
  4. CEFZIL [Concomitant]
     Indication: BRONCHITIS

REACTIONS (1)
  - BRONCHITIS [None]
